FAERS Safety Report 17966598 (Version 2)
Quarter: 2020Q3

REPORT INFORMATION
  Report Type: Spontaneous
  Country: BR (occurrence: BR)
  Receive Date: 20200630
  Receipt Date: 20200817
  Transmission Date: 20201103
  Serious: Yes (Other)
  Sender: FDA-Public Use
  Company Number: BR-BEH-2020119276

PATIENT
  Sex: Female

DRUGS (2)
  1. RHOPHYLAC [Suspect]
     Active Substance: HUMAN RHO(D) IMMUNE GLOBULIN
     Dosage: 1 DOSAGE FORM
     Route: 065
     Dates: start: 20200604
  2. RHOPHYLAC [Suspect]
     Active Substance: HUMAN RHO(D) IMMUNE GLOBULIN
     Dosage: 1 DOSAGE FORM
     Route: 065
     Dates: start: 20200604

REACTIONS (7)
  - Exposure during pregnancy [Unknown]
  - Pyrexia [Unknown]
  - Threatened labour [Unknown]
  - C-reactive protein increased [Unknown]
  - Infection [Unknown]
  - Leukocytosis [Unknown]
  - Suspected product contamination [Unknown]
